FAERS Safety Report 20562216 (Version 1)
Quarter: 2022Q1

REPORT INFORMATION
  Report Type: Spontaneous
  Country: US (occurrence: None)
  Receive Date: 20220307
  Receipt Date: 20220307
  Transmission Date: 20220423
  Serious: No
  Sender: FDA-Public Use
  Company Number: None

PATIENT

DRUGS (2)
  1. PFIZER-BIONTECH COVID-19 VACCINE [Suspect]
     Active Substance: TOZINAMERAN
  2. EPINEPHRINE [Suspect]
     Active Substance: EPINEPHRINE
     Route: 030

REACTIONS (3)
  - Vaccination complication [None]
  - Expired product administered [None]
  - Drug monitoring procedure not performed [None]
